FAERS Safety Report 4387487-8 (Version None)
Quarter: 2004Q2

REPORT INFORMATION
  Report Type: 
  Country: None (occurrence: None)
  Receive Date: 20040629
  Receipt Date: 20040629
  Transmission Date: 20050107
  Serious: Yes (Other)
  Sender: FDA-Public Use
  Company Number: None

PATIENT
  Age: 61 Year
  Sex: Male

DRUGS (1)
  1. CHLORHEXIDINE  GLUCONATE [Suspect]
     Indication: GINGIVITIS
     Dosage: ORAL RINSE 2X DAY
     Route: 048
     Dates: start: 20040121, end: 20040210

REACTIONS (1)
  - DYSGEUSIA [None]
